FAERS Safety Report 6533750-1 (Version None)
Quarter: 2010Q1

REPORT INFORMATION
  Report Type: 
  Country: None (occurrence: None)
  Receive Date: 20100111
  Receipt Date: 20090415
  Transmission Date: 20100710
  Serious: Yes (Hospitalization)
  Sender: FDA-Public Use
  Company Number: US-ABBOTT-09P-163-0568366-00

PATIENT
  Sex: Male
  Weight: 72.6 kg

DRUGS (6)
  1. VICODIN [Suspect]
     Indication: PAIN
     Route: 048
  2. FENTANYL CITRATE [Suspect]
     Indication: PAIN
     Route: 061
  3. SUNITINIB [Suspect]
     Indication: PROSTATE CANCER
     Route: 048
  4. LEXAPRO [Concomitant]
     Indication: DRUG USE FOR UNKNOWN INDICATION
  5. CELEBREX [Concomitant]
     Indication: DRUG USE FOR UNKNOWN INDICATION
  6. FOSAMAX [Concomitant]
     Indication: DRUG USE FOR UNKNOWN INDICATION

REACTIONS (1)
  - DIZZINESS [None]
